FAERS Safety Report 10775949 (Version 1)
Quarter: 2015Q1

REPORT INFORMATION
  Report Type: Spontaneous
  Country: US (occurrence: None)
  Receive Date: 20150205
  Receipt Date: 20150205
  Transmission Date: 20150721
  Serious: No
  Sender: FDA-Public Use
  Company Number: None

PATIENT

DRUGS (1)
  1. NITRO-DUR [Suspect]
     Active Substance: NITROGLYCERIN
     Dosage: DOSAGE FORM: PATCH, ADM ROUTE: TOPICAL, STRENGTH: 0.3 MG/HR, SIZE: 1 UNIT
     Route: 061

REACTIONS (3)
  - Product quality issue [None]
  - Circumstance or information capable of leading to medication error [None]
  - Product label confusion [None]
